FAERS Safety Report 4939486-2 (Version None)
Quarter: 2006Q1

REPORT INFORMATION
  Report Type: 
  Country: None (occurrence: None)
  Receive Date: 20060310
  Receipt Date: 20060302
  Transmission Date: 20060701
  Serious: Yes (Other)
  Sender: FDA-Public Use
  Company Number: US-JNJFOC-20060301581

PATIENT
  Sex: Female
  Weight: 76.2 kg

DRUGS (2)
  1. REMICADE [Suspect]
     Indication: CROHN'S DISEASE
  2. PREDNISONE [Concomitant]

REACTIONS (1)
  - GAIT DISTURBANCE [None]
